FAERS Safety Report 9422697 (Version 2)
Quarter: 2013Q3

REPORT INFORMATION
  Report Type: Spontaneous
  Country: BE (occurrence: BE)
  Receive Date: 20130726
  Receipt Date: 20130806
  Transmission Date: 20140515
  Serious: Yes (Other)
  Sender: FDA-Public Use
  Company Number: BE-ASTRAZENECA-2013SE54728

PATIENT
  Age: 758 Month
  Sex: Male
  Weight: 78 kg

DRUGS (4)
  1. CRESTOR [Suspect]
     Route: 048
     Dates: start: 2008
  2. CRESTOR [Suspect]
     Route: 048
  3. COVERSYL [Concomitant]
     Indication: HYPERTENSION
     Route: 048
     Dates: start: 2001
  4. ASAFLOW [Concomitant]

REACTIONS (3)
  - Bundle branch block right [Recovered/Resolved with Sequelae]
  - Blood creatine phosphokinase decreased [Unknown]
  - Arteriosclerosis [Unknown]
